FAERS Safety Report 20175811 (Version 1)
Quarter: 2021Q4

REPORT INFORMATION
  Report Type: Spontaneous
  Country: US (occurrence: None)
  Receive Date: 20211209
  Receipt Date: 20211209
  Transmission Date: 20220303
  Serious: No
  Sender: FDA-Public Use
  Company Number: None

PATIENT
  Age: 68 Year
  Sex: Male
  Weight: 90.72 kg

DRUGS (1)
  1. IVERMECTIN [Suspect]
     Active Substance: IVERMECTIN

REACTIONS (14)
  - Nausea [None]
  - Malaise [None]
  - Visual impairment [None]
  - Visual brightness [None]
  - Vitreous floaters [None]
  - Vomiting [None]
  - Abdominal pain [None]
  - Diarrhoea [None]
  - Dehydration [None]
  - Seizure [None]
  - Electrolyte imbalance [None]
  - Acidosis [None]
  - Liver function test increased [None]
  - Renal impairment [None]
